FAERS Safety Report 4865117-6 (Version None)
Quarter: 2005Q4

REPORT INFORMATION
  Report Type: 
  Country: None (occurrence: None)
  Receive Date: 20051219
  Receipt Date: 20051202
  Transmission Date: 20060501
  Serious: Yes (Hospitalization)
  Sender: FDA-Public Use
  Company Number: 8008053

PATIENT
  Age: 72 Year
  Sex: Male
  Weight: 60 kg

DRUGS (9)
  1. KEPPRA [Suspect]
     Indication: EPILEPSY
     Dosage: PO
     Route: 048
     Dates: start: 20040131, end: 20040607
  2. VALPROATE SODIUM [Concomitant]
  3. MYLEPSIN [Concomitant]
  4. DYTIDE [Concomitant]
  5. BELOC ZOK [Concomitant]
  6. DELIX [Concomitant]
  7. ASPIRIN [Concomitant]
  8. XIMOVAN [Concomitant]
  9. ZYLORIC                        ^FAES^ [Concomitant]

REACTIONS (16)
  - AFFECTIVE DISORDER [None]
  - CAROTID ARTERY STENOSIS [None]
  - CONVULSION [None]
  - COORDINATION ABNORMAL [None]
  - DEMENTIA [None]
  - ENURESIS [None]
  - FATIGUE [None]
  - GAMMA-GLUTAMYLTRANSFERASE INCREASED [None]
  - GRAND MAL CONVULSION [None]
  - HEPATOCELLULAR DAMAGE [None]
  - HEPATOTOXICITY [None]
  - PETIT MAL EPILEPSY [None]
  - PSYCHOTIC DISORDER [None]
  - THROMBOCYTOPENIA [None]
  - TREMOR [None]
  - VENOUS THROMBOSIS [None]
